FAERS Safety Report 4623021-2 (Version None)
Quarter: 2005Q1

REPORT INFORMATION
  Report Type: 
  Country: None (occurrence: None)
  Receive Date: 20050330
  Receipt Date: 20050315
  Transmission Date: 20050727
  Serious: Yes (Hospitalization)
  Sender: FDA-Public Use
  Company Number: US-JNJFOC-20050304597

PATIENT
  Age: 39 Year
  Sex: Female

DRUGS (4)
  1. MOTRIN [Suspect]
     Indication: PAIN
  2. MOTRIN [Suspect]
  3. MOTRIN [Suspect]
  4. MOTRIN [Suspect]
     Indication: PAIN

REACTIONS (2)
  - BLOOD PRESSURE INCREASED [None]
  - OEDEMA PERIPHERAL [None]
